FAERS Safety Report 16198547 (Version 1)
Quarter: 2019Q2

REPORT INFORMATION
  Report Type: Report from Study
  Country: KR (occurrence: KR)
  Receive Date: 20190415
  Receipt Date: 20190415
  Transmission Date: 20190711
  Serious: Yes (Hospitalization, Other)
  Sender: FDA-Public Use
  Company Number: KR-ELI_LILLY_AND_COMPANY-KR201904006136

PATIENT
  Age: 49 Year
  Sex: Male
  Weight: 70 kg

DRUGS (17)
  1. ASPIRIN [ACETYLSALICYLIC ACID] [Suspect]
     Active Substance: ASPIRIN
     Dosage: 100 MG, DAILY
     Route: 065
     Dates: start: 20180202
  2. HEPARIN [Concomitant]
     Active Substance: HEPARIN SODIUM
     Indication: ANTIPLATELET THERAPY
     Dosage: UNK UNK, UNKNOWN
     Route: 065
  3. ACERTIL [PERINDOPRIL ERBUMINE] [Concomitant]
     Indication: ANTIPLATELET THERAPY
     Dosage: UNK
  4. SIGMART [Concomitant]
     Active Substance: NICORANDIL
     Indication: ANTIPLATELET THERAPY
     Dosage: UNK
  5. SIGMART [Concomitant]
     Active Substance: NICORANDIL
     Indication: ACUTE CORONARY SYNDROME
     Dosage: 1 DOSAGE FORM, DAILY
     Route: 048
     Dates: start: 20180202
  6. HEPARIN [Concomitant]
     Active Substance: HEPARIN SODIUM
     Indication: ACUTE CORONARY SYNDROME
     Dosage: 5000 [IU], DAILY
     Route: 042
     Dates: start: 20180201, end: 20180201
  7. NEUSTATIN R [Concomitant]
     Indication: ANTIPLATELET THERAPY
     Dosage: UNK
  8. ACERTIL [PERINDOPRIL ERBUMINE] [Concomitant]
     Indication: ACUTE CORONARY SYNDROME
     Dosage: 1 DOSAGE FORM, DAILY
     Route: 048
     Dates: start: 20180202, end: 20180208
  9. VASTINAN [Concomitant]
     Active Substance: TRIMETAZIDINE DIHYDROCHLORIDE
     Indication: ANTIPLATELET THERAPY
     Dosage: UNK
  10. PRASUGREL HYDROCHLORIDE [Suspect]
     Active Substance: PRASUGREL HYDROCHLORIDE
     Indication: PRODUCT USED FOR UNKNOWN INDICATION
     Dosage: 10 MG, DAILY
     Route: 065
     Dates: start: 20180209, end: 20181027
  11. VASTINAN [Concomitant]
     Active Substance: TRIMETAZIDINE DIHYDROCHLORIDE
     Indication: ACUTE CORONARY SYNDROME
     Dosage: 1 DOSAGE FORM, DAILY
     Route: 048
     Dates: start: 20180202
  12. CRESTOR [Concomitant]
     Active Substance: ROSUVASTATIN CALCIUM
     Indication: ACUTE CORONARY SYNDROME
     Dosage: 1 DOSAGE FORM, DAILY
     Route: 048
     Dates: start: 20180209
  13. CRESTOR [Concomitant]
     Active Substance: ROSUVASTATIN CALCIUM
     Indication: ANTIPLATELET THERAPY
     Dosage: UNK
  14. TICAGRELOR. [Suspect]
     Active Substance: TICAGRELOR
     Indication: PRODUCT USED FOR UNKNOWN INDICATION
     Dosage: 180 MG, DAILY
     Route: 065
     Dates: start: 20180201
  15. TICAGRELOR. [Suspect]
     Active Substance: TICAGRELOR
     Dosage: 90 MG, BID
     Route: 065
     Dates: start: 20180202, end: 20180208
  16. ASPIRIN [ACETYLSALICYLIC ACID] [Suspect]
     Active Substance: ASPIRIN
     Indication: PRODUCT USED FOR UNKNOWN INDICATION
     Dosage: 300 MG, DAILY
     Route: 065
     Dates: start: 20180201
  17. NEUSTATIN R [Concomitant]
     Indication: ACUTE CORONARY SYNDROME
     Dosage: 1 DOSAGE FORM, DAILY
     Route: 048
     Dates: start: 20180202, end: 20180208

REACTIONS (2)
  - Transient ischaemic attack [Recovered/Resolved]
  - Chest pain [Recovered/Resolved]

NARRATIVE: CASE EVENT DATE: 20181018
